FAERS Safety Report 9238989 (Version 4)
Quarter: 2013Q3

REPORT INFORMATION
  Report Type: Spontaneous
  Country: PT (occurrence: PT)
  Receive Date: 20130418
  Receipt Date: 20130820
  Transmission Date: 20140515
  Serious: Yes (Death, Hospitalization, Other)
  Sender: FDA-Public Use
  Company Number: PT-B.I. PHARMACEUTICALS,INC./RIDGEFIELD-2013-BI-10080PO

PATIENT
  Sex: Female

DRUGS (4)
  1. PRADAXA [Suspect]
     Indication: THROMBOSIS PROPHYLAXIS
     Dates: start: 20120315, end: 20130318
  2. PRADAXA [Suspect]
     Indication: HEART DISEASE CONGENITAL
  3. PRADAXA [Suspect]
     Indication: TACHYARRHYTHMIA
  4. LOW MOLECULAR WEIGHT HEPARIN [Concomitant]

REACTIONS (4)
  - Retroperitoneal haemorrhage [Fatal]
  - Cardiac failure [Unknown]
  - Hypovolaemic shock [Unknown]
  - Renal failure [Unknown]
